FAERS Safety Report 6517702-3 (Version None)
Quarter: 2009Q4

REPORT INFORMATION
  Report Type: 
  Country: None (occurrence: None)
  Receive Date: 20091224
  Receipt Date: 20091221
  Transmission Date: 20100525
  Serious: Yes (Death, Life-Threatening)
  Sender: FDA-Public Use
  Company Number: DE-ASTRAZENECA-2009SE33096

PATIENT
  Age: 76 Year
  Sex: Female

DRUGS (17)
  1. SEROQUEL [Suspect]
     Indication: DEMENTIA
     Route: 048
     Dates: end: 20090514
  2. SEROQUEL [Suspect]
     Route: 048
     Dates: start: 20090515, end: 20090612
  3. HALDOL [Suspect]
     Route: 048
     Dates: start: 20090513, end: 20090526
  4. HALDOL [Suspect]
     Route: 048
     Dates: start: 20090527, end: 20090612
  5. REMINYL [Suspect]
     Route: 048
     Dates: end: 20090609
  6. REMINYL [Suspect]
     Route: 048
     Dates: start: 20090610, end: 20090611
  7. REMINYL [Suspect]
     Route: 048
     Dates: start: 20090611, end: 20090612
  8. ALLOPURINOL [Concomitant]
     Route: 048
     Dates: end: 20090612
  9. SIMVAHEXAL [Concomitant]
     Route: 048
     Dates: end: 20090612
  10. BISOHEXAL [Concomitant]
     Route: 048
     Dates: end: 20090612
  11. TORSEMIDE [Concomitant]
     Route: 048
     Dates: end: 20090612
  12. LEVOTHYROXINE SODIUM [Concomitant]
     Route: 048
     Dates: end: 20090612
  13. DELIX [Concomitant]
     Route: 048
     Dates: end: 20090612
  14. JENASPIRON [Concomitant]
     Route: 048
     Dates: end: 20090612
  15. CLEXANE [Concomitant]
     Route: 058
     Dates: end: 20090612
  16. ACTRAPID [Concomitant]
     Route: 058
     Dates: end: 20090612
  17. PROTAPHANE [Concomitant]
     Route: 058
     Dates: end: 20090612

REACTIONS (2)
  - CARDIAC ARREST [None]
  - MYOCARDIAL INFARCTION [None]
